FAERS Safety Report 6673687-0 (Version None)
Quarter: 2010Q2

REPORT INFORMATION
  Report Type: 
  Country: None (occurrence: None)
  Receive Date: 20100408
  Receipt Date: 20100402
  Transmission Date: 20101027
  Serious: Yes (Other)
  Sender: FDA-Public Use
  Company Number: US-AMGEN-QUU401127

PATIENT
  Sex: Male
  Weight: 112.1 kg

DRUGS (8)
  1. ARANESP [Suspect]
     Indication: RENAL FAILURE CHRONIC
     Route: 058
     Dates: start: 20100216, end: 20100401
  2. GLYBURIDE [Concomitant]
  3. SODIUM BICARBONATE [Concomitant]
     Dates: start: 20091014
  4. ATENOLOL [Concomitant]
  5. NORVASC [Concomitant]
     Dates: start: 20100128
  6. KAYEXALATE [Concomitant]
     Dates: start: 20100217
  7. FERROUS SULFATE TAB [Concomitant]
     Dates: start: 20100217
  8. CALCIUM CARBONATE [Concomitant]
     Dates: start: 20100217

REACTIONS (6)
  - CHILLS [None]
  - FLUID RETENTION [None]
  - GENERALISED OEDEMA [None]
  - LETHARGY [None]
  - MALAISE [None]
  - MOBILITY DECREASED [None]
